FAERS Safety Report 5114093-X (Version None)
Quarter: 2006Q3

REPORT INFORMATION
  Report Type: 
  Country: None (occurrence: None)
  Receive Date: 20060925
  Receipt Date: 20060512
  Transmission Date: 20061208
  Serious: Yes (Hospitalization)
  Sender: FDA-Public Use
  Company Number: SE-GLAXOSMITHKLINE-B0424176A

PATIENT
  Age: 46 Year
  Sex: Male

DRUGS (9)
  1. VALTREX [Suspect]
     Indication: HERPES ZOSTER
     Route: 048
     Dates: start: 20060208, end: 20060210
  2. METOPROLOL SUCCINATE [Concomitant]
     Route: 065
  3. DIOVAN [Concomitant]
     Route: 065
  4. INSULATARD NPH HUMAN [Concomitant]
     Route: 065
  5. KALCITENA [Concomitant]
     Route: 065
  6. ETALPHA [Concomitant]
     Route: 065
  7. NORVASC [Concomitant]
     Route: 065
  8. ALFADIL [Concomitant]
     Route: 065
  9. VENOFER [Concomitant]

REACTIONS (3)
  - CONFUSIONAL STATE [None]
  - HALLUCINATION [None]
  - SPEECH DISORDER [None]
